FAERS Safety Report 9440911 (Version 2)
Quarter: 2013Q3

REPORT INFORMATION
  Report Type: Report from Study
  Country: BR (occurrence: BR)
  Receive Date: 20130805
  Receipt Date: 20130828
  Transmission Date: 20140515
  Serious: Yes (Other)
  Sender: FDA-Public Use
  Company Number: PHHY2013BR082578

PATIENT
  Age: 53 Year
  Sex: Male

DRUGS (10)
  1. MYFORTIC [Suspect]
     Indication: RENAL TRANSPLANT
     Dosage: 720 MG, BID
     Route: 048
     Dates: start: 20120910
  2. SIMULECT [Suspect]
     Indication: RENAL TRANSPLANT
     Dosage: 20 MG, ON DAY 0 AND DAY 04
     Route: 042
     Dates: start: 20120910, end: 20120914
  3. TACROLIMUS [Suspect]
     Indication: RENAL TRANSPLANT
     Dosage: 1 MG, BID
     Route: 048
     Dates: start: 20120910, end: 20121220
  4. PREDNISONE [Suspect]
     Indication: RENAL TRANSPLANT
     Dosage: 5 MG, QD
     Dates: start: 20120911
  5. EVEROLIMUS [Concomitant]
     Indication: RENAL TRANSPLANT
     Dosage: 1 MG, BID
     Route: 048
     Dates: start: 20121206
  6. AAS [Concomitant]
     Indication: CARDIOVASCULAR EVENT PROPHYLAXIS
     Dosage: 100 MG, UNK
     Route: 048
     Dates: start: 20120910
  7. CLONIDINE [Concomitant]
     Indication: HYPERTENSION
     Dosage: 0.3 MG, BID
     Route: 048
     Dates: start: 20120913
  8. HYDROCHLOROTHIAZIDE [Concomitant]
     Indication: HYPERTENSION
     Dosage: 25 MG, UNK
     Route: 048
     Dates: start: 20121030
  9. NIFEDIPINE [Concomitant]
     Indication: HYPERTENSION
     Dosage: 20 MG,
     Route: 048
     Dates: start: 20121011
  10. ATORVASTATIN [Concomitant]
     Indication: DYSLIPIDAEMIA
     Dosage: 20 MG, UNK
     Route: 048
     Dates: start: 20130523

REACTIONS (1)
  - Left ventricular hypertrophy [Recovering/Resolving]
